FAERS Safety Report 18338257 (Version 1)
Quarter: 2020Q4

REPORT INFORMATION
  Report Type: Spontaneous
  Country: US (occurrence: US)
  Receive Date: 20201001
  Receipt Date: 20201001
  Transmission Date: 20210113
  Serious: Yes (Disabling)
  Sender: FDA-Public Use
  Company Number: None

PATIENT
  Age: 43 Year
  Sex: Female
  Weight: 76.5 kg

DRUGS (2)
  1. PACEMAKER [Concomitant]
     Active Substance: DEVICE
  2. MODAFINIL. [Suspect]
     Active Substance: MODAFINIL
     Indication: SLEEP DISORDER
     Dosage: ?          QUANTITY:1 CAPSULE(S);?THERAPY ONGOING: Y?
     Route: 048
     Dates: start: 20200930, end: 20201001

REACTIONS (2)
  - Gait disturbance [None]
  - Dysarthria [None]

NARRATIVE: CASE EVENT DATE: 20200930
